FAERS Safety Report 23134461 (Version 5)
Quarter: 2024Q2

REPORT INFORMATION
  Report Type: Spontaneous
  Country: JP (occurrence: JP)
  Receive Date: 20231101
  Receipt Date: 20240410
  Transmission Date: 20240716
  Serious: Yes (Death, Other)
  Sender: FDA-Public Use
  Company Number: JP-MSD-M2023-45016

PATIENT
  Age: 62 Year
  Sex: Male

DRUGS (5)
  1. KEYTRUDA [Suspect]
     Active Substance: PEMBROLIZUMAB
     Indication: Oesophageal carcinoma
     Dosage: 200 MILLIGRAM, Q3W
     Route: 041
     Dates: start: 20230911, end: 20230911
  2. FLUOROURACIL [Concomitant]
     Active Substance: FLUOROURACIL
     Indication: Oesophageal carcinoma
     Dosage: 800 MILLIGRAM/SQ. METER
     Route: 041
     Dates: start: 20230911, end: 20230911
  3. CISPLATIN [Concomitant]
     Active Substance: CISPLATIN
     Indication: Oesophageal carcinoma
     Dosage: 80 MILLIGRAM/SQ. METER
     Route: 041
     Dates: start: 20230911, end: 20230911
  4. FENTANYL [Concomitant]
     Active Substance: FENTANYL\FENTANYL CITRATE
     Dosage: 1.5 MILLIGRAM
     Route: 065
  5. AMINO ACIDS\DEXTROSE\ELECTROLYTES NOS\MINERALS\VITAMINS [Concomitant]
     Active Substance: AMINO ACIDS\DEXTROSE\ELECTROLYTES NOS\MINERALS\VITAMINS
     Dosage: UNK
     Route: 065

REACTIONS (8)
  - Organising pneumonia [Fatal]
  - Malignant neoplasm progression [Not Recovered/Not Resolved]
  - Interleukin level increased [Unknown]
  - N-terminal prohormone brain natriuretic peptide increased [Unknown]
  - Pyrexia [Unknown]
  - Cough [Unknown]
  - Malaise [Unknown]
  - Pleural effusion [Unknown]

NARRATIVE: CASE EVENT DATE: 20230917
